FAERS Safety Report 13657541 (Version 3)
Quarter: 2017Q3

REPORT INFORMATION
  Report Type: Spontaneous
  Country: US (occurrence: US)
  Receive Date: 20170615
  Receipt Date: 20170811
  Transmission Date: 20171127
  Serious: Yes (Other)
  Sender: FDA-Public Use
  Company Number: US-ABBVIE-17P-163-2003684-00

PATIENT
  Age: 43 Year
  Sex: Male
  Weight: 65.83 kg

DRUGS (12)
  1. PEPCID [Concomitant]
     Active Substance: FAMOTIDINE
     Indication: PRODUCT USED FOR UNKNOWN INDICATION
     Route: 048
     Dates: start: 20150829
  2. FLONASE [Interacting]
     Active Substance: FLUTICASONE PROPIONATE
     Indication: HYPERSENSITIVITY
     Dosage: SPRAY 1 TO 2 SPRAYS EACH NOSTRIL DAILY
     Route: 045
     Dates: start: 20160928, end: 20161031
  3. PREDNISONE. [Interacting]
     Active Substance: PREDNISONE
     Indication: EAR INFECTION
     Dosage: 3 TAB DAILY FOR 2 DAYS THEN 2 TAB DAILY FOR 2 DAYS THEN 1 TAB DAILY FOR 2 DAYS
     Route: 048
     Dates: start: 20160918, end: 20160919
  4. PREDNISONE. [Interacting]
     Active Substance: PREDNISONE
     Dosage: 3 TAB DAILY FOR 3 DAYS THEN 2 TAB DAILY FOR 3 DAYS THEN 1 TAB DAILY FOR 3 DAYS
     Route: 048
     Dates: start: 20160920, end: 20160921
  5. INTELENCE [Concomitant]
     Active Substance: ETRAVIRINE
     Indication: PRODUCT USED FOR UNKNOWN INDICATION
     Route: 048
     Dates: start: 20160913
  6. PREZISTA [Concomitant]
     Active Substance: DARUNAVIR ETHANOLATE
     Indication: PRODUCT USED FOR UNKNOWN INDICATION
     Route: 048
     Dates: start: 20160913
  7. CLONIDINE. [Suspect]
     Active Substance: CLONIDINE
     Indication: HYPERTENSION
     Route: 065
     Dates: start: 20161129, end: 201612
  8. DULCOLAX NOS [Concomitant]
     Active Substance: BISACODYL OR DOCUSATE SODIUM
     Indication: PRODUCT USED FOR UNKNOWN INDICATION
     Route: 048
     Dates: start: 20160427
  9. VIREAD [Concomitant]
     Active Substance: TENOFOVIR DISOPROXIL FUMARATE
     Indication: PRODUCT USED FOR UNKNOWN INDICATION
     Route: 048
  10. ANUSOL 2.5% [Concomitant]
     Indication: PRODUCT USED FOR UNKNOWN INDICATION
     Route: 054
     Dates: start: 20160427
  11. NORVIR [Suspect]
     Active Substance: RITONAVIR
     Indication: ACQUIRED IMMUNODEFICIENCY SYNDROME
     Route: 048
     Dates: start: 2010, end: 201701
  12. METAMUCIL FIBRE THERAPY [Concomitant]
     Indication: PRODUCT USED FOR UNKNOWN INDICATION
     Route: 048
     Dates: start: 20160427

REACTIONS (46)
  - Fall [Recovered/Resolved]
  - Bipolar disorder [Not Recovered/Not Resolved]
  - Panic attack [Not Recovered/Not Resolved]
  - Blood cholesterol increased [Unknown]
  - Coeliac disease [Not Recovered/Not Resolved]
  - Pulpitis dental [Unknown]
  - Musculoskeletal pain [Unknown]
  - Anxiety [Unknown]
  - Drug interaction [Recovering/Resolving]
  - CD4/CD8 ratio decreased [Unknown]
  - Eustachian tube disorder [Unknown]
  - Rhinitis allergic [Unknown]
  - Arthralgia [Unknown]
  - Suicidal ideation [Not Recovered/Not Resolved]
  - Pain [Recovering/Resolving]
  - Mental disorder [Not Recovered/Not Resolved]
  - Cushing^s syndrome [Recovering/Resolving]
  - Dyspnoea [Unknown]
  - Fatigue [Unknown]
  - Otitis media acute [Unknown]
  - Chest pain [Unknown]
  - Nasopharyngitis [Recovered/Resolved]
  - Bone loss [Not Recovered/Not Resolved]
  - Agoraphobia [Not Recovered/Not Resolved]
  - Depression [Not Recovered/Not Resolved]
  - Agoraphobia [Unknown]
  - Mental disorder [Unknown]
  - Hepatic cirrhosis [Not Recovered/Not Resolved]
  - Chest discomfort [Recovered/Resolved]
  - Dental caries [Not Recovered/Not Resolved]
  - Social anxiety disorder [Not Recovered/Not Resolved]
  - Hyperglycaemia [Unknown]
  - Wrong drug administered [Recovered/Resolved]
  - Acne [Recovered/Resolved]
  - Fear of death [Unknown]
  - Paranoia [Unknown]
  - Alopecia [Recovered/Resolved]
  - Chest discomfort [Recovering/Resolving]
  - Rash [Unknown]
  - Bronchitis [Recovered/Resolved]
  - Ear infection [Recovered/Resolved]
  - Oral candidiasis [Recovering/Resolving]
  - Viral load increased [Unknown]
  - Cerumen impaction [Unknown]
  - Alopecia [Unknown]
  - Pneumonia [Unknown]

NARRATIVE: CASE EVENT DATE: 20140712
